FAERS Safety Report 11996647 (Version 1)
Quarter: 2016Q1

REPORT INFORMATION
  Report Type: Report from Study
  Country: BR (occurrence: BR)
  Receive Date: 20160203
  Receipt Date: 20160203
  Transmission Date: 20160526
  Serious: Yes (Death)
  Sender: FDA-Public Use
  Company Number: PHHY2016BR014602

PATIENT
  Sex: Female
  Weight: 47 kg

DRUGS (1)
  1. EXJADE [Suspect]
     Active Substance: DEFERASIROX
     Indication: IRON OVERLOAD
     Dosage: 20 MG/KG, QD (1000 MG ONCE DAILY)
     Route: 048
     Dates: start: 201509

REACTIONS (2)
  - General physical health deterioration [Unknown]
  - Disease complication [Fatal]
